FAERS Safety Report 5086453-7 (Version None)
Quarter: 2006Q3

REPORT INFORMATION
  Report Type: 
  Country: None (occurrence: None)
  Receive Date: 20060703
  Receipt Date: 20050913
  Transmission Date: 20061208
  Serious: No
  Sender: FDA-Public Use
  Company Number: 2005S1009108

PATIENT
  Age: 43 Year
  Sex: Male

DRUGS (8)
  1. CLOZAPINE [Suspect]
     Indication: SCHIZOAFFECTIVE DISORDER
     Dosage: 300 MG;QD;PO
     Route: 048
     Dates: start: 20000301
  2. LORAZEPAM [Concomitant]
  3. ALBUTEROL SPIROS [Concomitant]
  4. LISINOPRIL [Concomitant]
  5. METFORMIN HCL [Concomitant]
  6. HYDROCHLORIDE/GLIBENCLAMIDE [Concomitant]
  7. PAROXETINE HYDROCHLORIDE [Concomitant]
  8. LOPERAMIDE HYDROCHLORIDE [Concomitant]

REACTIONS (1)
  - GRANULOCYTOPENIA [None]
